FAERS Safety Report 8492950-4 (Version None)
Quarter: 2012Q3

REPORT INFORMATION
  Report Type: 
  Country: None (occurrence: None)
  Receive Date: 20120706
  Receipt Date: 20120626
  Transmission Date: 20120928
  Serious: Yes (Life-Threatening, Hospitalization)
  Sender: FDA-Public Use
  Company Number: FR-GLAXOSMITHKLINE-B0810655A

PATIENT
  Sex: Female

DRUGS (4)
  1. ONDANSETRON HYDROCHLORIDE [Suspect]
     Indication: PREMEDICATION
     Dosage: 8MG UNKNOWN
     Route: 042
     Dates: start: 20120510, end: 20120510
  2. ZANTAC [Suspect]
     Indication: PREMEDICATION
     Route: 042
     Dates: start: 20120510, end: 20120510
  3. TAXOL [Concomitant]
     Indication: CHEMOTHERAPY
     Dosage: 270MG UNKNOWN
     Route: 065
     Dates: start: 20120510
  4. CARBOPLATIN [Concomitant]
     Indication: CHEMOTHERAPY
     Dosage: 460MG UNKNOWN
     Route: 065
     Dates: start: 20120510

REACTIONS (3)
  - ANAPHYLACTIC SHOCK [None]
  - CARDIO-RESPIRATORY ARREST [None]
  - MALAISE [None]
